FAERS Safety Report 14527782 (Version 6)
Quarter: 2018Q2

REPORT INFORMATION
  Report Type: Report from Study
  Country: US (occurrence: US)
  Receive Date: 20180213
  Receipt Date: 20180406
  Transmission Date: 20180711
  Serious: Yes (Hospitalization)
  Sender: FDA-Public Use
  Company Number: US-ACTELION-A-NJ2015-114539

PATIENT
  Age: 85 Year
  Sex: Female
  Weight: 52.15 kg

DRUGS (16)
  1. PRADAXA [Concomitant]
     Active Substance: DABIGATRAN ETEXILATE MESYLATE
  2. COREG [Concomitant]
     Active Substance: CARVEDILOL
  3. K-DUR [Concomitant]
     Active Substance: POTASSIUM CHLORIDE
  4. OPSUMIT [Concomitant]
     Active Substance: MACITENTAN
  5. ADVAIR HFA [Concomitant]
     Active Substance: FLUTICASONE PROPIONATE\SALMETEROL XINAFOATE
  6. ORENITRAM [Suspect]
     Active Substance: TREPROSTINIL
     Dosage: 0.25 MG, TID
     Route: 048
     Dates: start: 20180205
  7. ORENITRAM [Suspect]
     Active Substance: TREPROSTINIL
     Dosage: 0.5 MG, TID
     Route: 048
  8. DIGOXIN. [Concomitant]
     Active Substance: DIGOXIN
  9. ZYLOPRIM [Concomitant]
     Active Substance: ALLOPURINOL
  10. TRACLEER [Suspect]
     Active Substance: BOSENTAN
     Indication: PULMONARY ARTERIAL HYPERTENSION
     Dosage: 125 MG, BID
     Route: 048
     Dates: start: 20140730
  11. ORENITRAM [Suspect]
     Active Substance: TREPROSTINIL
     Indication: PRODUCT USED FOR UNKNOWN INDICATION
     Dosage: UNK UNK, TID
     Route: 048
     Dates: start: 20180126
  12. MULTIVITAMINS [Concomitant]
     Active Substance: VITAMINS
  13. FORTEO [Concomitant]
     Active Substance: TERIPARATIDE
  14. ELIQUIS [Concomitant]
     Active Substance: APIXABAN
  15. DUONEB [Concomitant]
     Active Substance: ALBUTEROL SULFATE\IPRATROPIUM BROMIDE
  16. COENZYME Q10 [Concomitant]
     Active Substance: UBIDECARENONE

REACTIONS (24)
  - Dyspnoea [Unknown]
  - Chest discomfort [Unknown]
  - Erythema [Unknown]
  - Cough [Unknown]
  - Diarrhoea [Unknown]
  - Malaise [Unknown]
  - Wheezing [Unknown]
  - Dizziness [Unknown]
  - Condition aggravated [Not Recovered/Not Resolved]
  - Gastrooesophageal reflux disease [Unknown]
  - Peripheral swelling [Unknown]
  - Toothache [Recovered/Resolved]
  - Respiratory tract infection [Unknown]
  - Asthenia [Not Recovered/Not Resolved]
  - Decreased appetite [Unknown]
  - Fatigue [Unknown]
  - Decreased activity [Unknown]
  - Unevaluable event [Unknown]
  - Bronchitis [Unknown]
  - Headache [Unknown]
  - Loss of personal independence in daily activities [Unknown]
  - Dyspnoea exertional [Unknown]
  - Nausea [Unknown]
  - Insomnia [Unknown]

NARRATIVE: CASE EVENT DATE: 20150211
